FAERS Safety Report 6873553-1 (Version None)
Quarter: 2010Q3

REPORT INFORMATION
  Report Type: 
  Country: None (occurrence: None)
  Receive Date: 20100723
  Receipt Date: 20090205
  Transmission Date: 20110219
  Serious: No
  Sender: FDA-Public Use
  Company Number: US-PFIZER INC-2009167546

PATIENT
  Sex: Male
  Weight: 83 kg

DRUGS (3)
  1. CHANTIX [Suspect]
     Indication: SMOKING CESSATION THERAPY
     Dosage: 1 MG, 2X/DAY
     Route: 048
     Dates: start: 20090115
  2. ADVAIR DISKUS 100/50 [Concomitant]
     Dosage: UNK
     Route: 048
  3. CROMOLYN SODIUM [Concomitant]
     Dosage: UNK
     Route: 048

REACTIONS (1)
  - HEADACHE [None]
